FAERS Safety Report 9034541 (Version 1)
Quarter: 2013Q1

REPORT INFORMATION
  Report Type: Spontaneous
  Country: US (occurrence: None)
  Receive Date: 20130115
  Receipt Date: 20130115
  Transmission Date: 20140127
  Serious: Yes (Other)
  Sender: FDA-Public Use
  Company Number: 2013010050

PATIENT
  Age: 45 Year
  Sex: Male

DRUGS (4)
  1. ZOLPIDEM (ZOLPIDEM) [Suspect]
     Indication: INSOMNIA
  2. PAROXETNIE ER (PAROXETINE) [Suspect]
     Indication: BIPOLAR I DISORDER
  3. QUETIAPINE (QUETIAPINE) (QUETIAPINE) [Concomitant]
  4. LORAZEPAM (LORAZEPAM) [Concomitant]

REACTIONS (8)
  - Confusional state [None]
  - Convulsion [None]
  - Major depression [None]
  - Factitious disorder [None]
  - Amnesia [None]
  - Homicide [None]
  - Aggression [None]
  - Drug interaction [None]
